FAERS Safety Report 9711697 (Version 1)
Quarter: 2013Q4

REPORT INFORMATION
  Report Type: Spontaneous
  Country: KR (occurrence: None)
  Receive Date: 20131122
  Receipt Date: 20131122
  Transmission Date: 20140711
  Serious: Yes (Life-Threatening, Hospitalization)
  Sender: FDA-Public Use
  Company Number: 2013P1021058

PATIENT
  Age: 47 Year
  Sex: Female

DRUGS (3)
  1. AMLODIPINE [Suspect]
     Route: 048
  2. NICORANDIL [Suspect]
     Route: 048
  3. ISOSORBIDE DINITRATE [Suspect]
     Route: 048

REACTIONS (6)
  - Hypotension [None]
  - Lethargy [None]
  - Sinus bradycardia [None]
  - Suicide attempt [None]
  - Hyperglycaemia [None]
  - Intentional overdose [None]
